FAERS Safety Report 4898640-9 (Version None)
Quarter: 2006Q1

REPORT INFORMATION
  Report Type: 
  Country: None (occurrence: None)
  Receive Date: 20060130
  Receipt Date: 20060118
  Transmission Date: 20060701
  Serious: Yes (Hospitalization)
  Sender: FDA-Public Use
  Company Number: HQWYE064016DEC05

PATIENT
  Age: 89 Year
  Sex: Female

DRUGS (9)
  1. CORDARONE [Suspect]
     Indication: HYPERTENSIVE HEART DISEASE
     Dosage: 200 MG 1X PER 1 DAY, ORAL
     Route: 048
     Dates: end: 20041225
  2. AMLODIPINE BESYLATE [Suspect]
     Indication: HYPERTENSIVE HEART DISEASE
     Dosage: 10 MG 1X PER 1 DAY, ORAL
     Route: 048
  3. PAROXETINE HYDROCHLORIDE [Suspect]
     Indication: DYSTHYMIC DISORDER
     Dosage: 20 MG 1X  PER 1 DAY, ORAL
     Route: 048
     Dates: end: 20041212
  4. FUROSEMIDE [Suspect]
     Indication: HYPERTENSIVE HEART DISEASE
     Dosage: 40 MG 1X PER 1 DAY, ORAL
     Route: 048
     Dates: end: 20041215
  5. SINTROM [Suspect]
     Indication: ATRIAL FIBRILLATION
     Dosage: 1 MG 1X PER 1 DAY, ORAL
     Route: 048
  6. SINTROM [Suspect]
     Indication: ATRIAL FLUTTER
     Dosage: 1 MG 1X PER 1 DAY, ORAL
     Route: 048
  7. RAMIPRIL [Suspect]
     Indication: HYPERTENSIVE HEART DISEASE
     Dosage: 5 MG 1X PER 1 DAY, ORAL
     Route: 048
  8. POTASSIUM CHLORIDE [Concomitant]
  9. VASTAREL (TRIMETAZIDINE HYDROCHLORIDE) [Concomitant]

REACTIONS (6)
  - CARDIOMEGALY [None]
  - DISTURBANCE IN ATTENTION [None]
  - HYPERCAPNIA [None]
  - HYPONATRAEMIA [None]
  - OBSTRUCTIVE AIRWAYS DISORDER [None]
  - PULMONARY FIBROSIS [None]
